FAERS Safety Report 23091650 (Version 3)
Quarter: 2023Q4

REPORT INFORMATION
  Report Type: Spontaneous
  Country: JP (occurrence: None)
  Receive Date: 20231020
  Receipt Date: 20231218
  Transmission Date: 20240110
  Serious: Yes (Hospitalization, Other)
  Sender: FDA-Public Use
  Company Number: 2023A235126

PATIENT

DRUGS (3)
  1. IMFINZI [Suspect]
     Active Substance: DURVALUMAB
     Indication: Non-small cell lung cancer
     Route: 041
     Dates: start: 20210831, end: 20210914
  2. IMFINZI [Suspect]
     Active Substance: DURVALUMAB
     Indication: Non-small cell lung cancer
     Route: 041
     Dates: start: 20211109, end: 20220830
  3. NEXIUM [Suspect]
     Active Substance: ESOMEPRAZOLE MAGNESIUM
     Indication: Abdominal pain upper
     Dosage: DOSE UNKNOWN
     Route: 048
     Dates: end: 20210817

REACTIONS (13)
  - Metastases to meninges [Unknown]
  - Metastases to central nervous system [Unknown]
  - White blood cell count decreased [Unknown]
  - Neutrophil count decreased [Unknown]
  - Dysphagia [Unknown]
  - Platelet count decreased [Unknown]
  - Lung opacity [Unknown]
  - Nausea [Recovering/Resolving]
  - Thyroid disorder [Unknown]
  - Radiation oesophagitis [Recovering/Resolving]
  - Stomatitis [Recovering/Resolving]
  - Thyroiditis [Unknown]
  - Abdominal pain upper [Recovering/Resolving]

NARRATIVE: CASE EVENT DATE: 20210701
